FAERS Safety Report 4277492-4 (Version None)
Quarter: 2004Q1

REPORT INFORMATION
  Report Type: 
  Country: None (occurrence: None)
  Receive Date: 20040122
  Receipt Date: 20011030
  Transmission Date: 20041129
  Serious: Yes (Hospitalization)
  Sender: FDA-Public Use
  Company Number: 11052461

PATIENT
  Age: 67 Year
  Sex: Male

DRUGS (5)
  1. ATENOLOL [Suspect]
     Route: 048
     Dates: start: 20010725, end: 20011028
  2. PRAVASTATIN SODIUM [Suspect]
     Dosage: MOST RECENT DOSE PRIOR TO EVENT WAS 27OCT01.
     Route: 048
     Dates: start: 20010730
  3. GATIFLOXACIN [Suspect]
     Dosage: DRUG WAS PERMANENTLY DISCONTINUED ON 27OCT01.
     Route: 048
     Dates: start: 20010815, end: 20011027
  4. ASPIRIN [Concomitant]
     Route: 048
     Dates: start: 20010724
  5. RAMIPRIL [Concomitant]
     Route: 048
     Dates: start: 20010731

REACTIONS (7)
  - AGE INDETERMINATE MYOCARDIAL INFARCTION [None]
  - BRADYCARDIA [None]
  - ELECTROCARDIOGRAM QT CORRECTED INTERVAL PROLONGED [None]
  - ELECTROCARDIOGRAM QT PROLONGED [None]
  - PALPITATIONS [None]
  - QRS AXIS ABNORMAL [None]
  - VENTRICULAR EXTRASYSTOLES [None]
